FAERS Safety Report 8172904-8 (Version None)
Quarter: 2012Q1

REPORT INFORMATION
  Report Type: 
  Country: None (occurrence: None)
  Receive Date: 20120223
  Receipt Date: 20120208
  Transmission Date: 20120608
  Serious: Yes (Other)
  Sender: FDA-Public Use
  Company Number: 1000028475

PATIENT
  Age: 16 Year
  Sex: Female

DRUGS (3)
  1. ESCITALOPRAM OXALATE [Suspect]
     Indication: ANXIETY
     Dosage: 10 MG (10 MG, 1 IN 1 D),ORAL ,(15 MG,INSTEAD OF 10 MG, WHEN REQUIRED),ORAL
     Route: 048
     Dates: end: 20120202
  2. ESCITALOPRAM OXALATE [Suspect]
     Indication: ANXIETY
     Dosage: 10 MG (10 MG, 1 IN 1 D),ORAL ,(15 MG,INSTEAD OF 10 MG, WHEN REQUIRED),ORAL
     Route: 048
     Dates: end: 20120202
  3. ESCITALOPRAM OXALATE [Suspect]
     Indication: ANXIETY
     Dosage: 10 MG (10 MG, 1 IN 1 D),ORAL
     Route: 048
     Dates: start: 20120205

REACTIONS (6)
  - MUSCLE TWITCHING [None]
  - TONGUE DISORDER [None]
  - DYSKINESIA [None]
  - DRUG WITHDRAWAL SYNDROME [None]
  - OFF LABEL USE [None]
  - ANXIETY [None]
